FAERS Safety Report 12877357 (Version 2)
Quarter: 2016Q4

REPORT INFORMATION
  Report Type: Spontaneous
  Country: GR (occurrence: GR)
  Receive Date: 20161024
  Receipt Date: 20161202
  Transmission Date: 20170207
  Serious: Yes (Other)
  Sender: FDA-Public Use
  Company Number: PHHY2016GR127984

PATIENT
  Age: 42 Year
  Sex: Female

DRUGS (2)
  1. CALCIUM [Suspect]
     Active Substance: CALCIUM
     Indication: PRODUCT USED FOR UNKNOWN INDICATION
     Route: 065
  2. EXJADE [Suspect]
     Active Substance: DEFERASIROX
     Indication: HAEMOSIDEROSIS
     Dosage: 2 DF, UNK
     Route: 065

REACTIONS (6)
  - Abdominal pain [Unknown]
  - Pollakiuria [Recovered/Resolved]
  - Calculus bladder [Unknown]
  - Abdominal pain [Recovered/Resolved]
  - Calculus bladder [Recovered/Resolved]
  - Renal atrophy [Recovered/Resolved]

NARRATIVE: CASE EVENT DATE: 20161124
